FAERS Safety Report 4472683-1 (Version None)
Quarter: 2004Q4

REPORT INFORMATION
  Report Type: 
  Country: None (occurrence: None)
  Receive Date: 20041012
  Receipt Date: 20041012
  Transmission Date: 20050328
  Serious: Yes (Hospitalization)
  Sender: FDA-Public Use
  Company Number: None

PATIENT
  Age: 28 Year
  Sex: Female
  Weight: 83.6 kg

DRUGS (9)
  1. LISINOPRIL [Suspect]
     Dosage: 10 MG PO DAILY
     Route: 048
     Dates: start: 20031224, end: 20031230
  2. ROFECOXIB [Suspect]
     Dosage: 25 MG PO BID
     Route: 048
     Dates: start: 20031224, end: 20031230
  3. PAXIL [Concomitant]
  4. METOPROLOL [Concomitant]
  5. DILAUDID [Concomitant]
  6. LASIX [Concomitant]
  7. LOVENOX [Concomitant]
  8. AZITHROMYCIN [Concomitant]
  9. VANCOMYCIN [Concomitant]

REACTIONS (5)
  - HYPOVOLAEMIA [None]
  - OEDEMA [None]
  - PAIN [None]
  - RENAL DISORDER [None]
  - RENAL FAILURE ACUTE [None]
